FAERS Safety Report 15270047 (Version 2)
Quarter: 2018Q3

REPORT INFORMATION
  Report Type: Spontaneous
  Country: US (occurrence: US)
  Receive Date: 20180813
  Receipt Date: 20180824
  Transmission Date: 20181010
  Serious: No
  Sender: FDA-Public Use
  Company Number: US-PFIZER INC-2018323600

PATIENT
  Age: 82 Year
  Sex: Female
  Weight: 99.79 kg

DRUGS (3)
  1. XALATAN [Concomitant]
     Active Substance: LATANOPROST
     Indication: GLAUCOMA
     Dosage: 2 GTT, 1X/DAY (1 DROP IN EACH EYE EACH NIGHT)
     Dates: start: 2018
  2. LATANOPROST. [Suspect]
     Active Substance: LATANOPROST
     Indication: GLAUCOMA
  3. LATANOPROST. [Suspect]
     Active Substance: LATANOPROST
     Indication: MACULAR DEGENERATION
     Dosage: UNK

REACTIONS (1)
  - Drug ineffective [Recovered/Resolved]
